FAERS Safety Report 23901488 (Version 1)
Quarter: 2024Q2

REPORT INFORMATION
  Report Type: Spontaneous
  Country: US (occurrence: None)
  Receive Date: 20240526
  Receipt Date: 20240526
  Transmission Date: 20240716
  Serious: No
  Sender: FDA-Public Use
  Company Number: US-ROCHE-3354102

PATIENT
  Age: 56 Year
  Sex: Female

DRUGS (1)
  1. OCREVUS [Suspect]
     Active Substance: OCRELIZUMAB
     Indication: Multiple sclerosis
     Dosage: 6TH MONTH INFUSION ;ONGOING: YES?SUBSEQUENT DOSES ON 15/NOV/2022, 18/MAY/2023
     Route: 042
     Dates: start: 20221101

REACTIONS (3)
  - Fatigue [Not Recovered/Not Resolved]
  - Limb discomfort [Unknown]
  - Sluggishness [Unknown]

NARRATIVE: CASE EVENT DATE: 20230518
